FAERS Safety Report 7707069 (Version 4)
Quarter: 2014Q4

REPORT INFORMATION
  Report Type: Spontaneous
  Country: US (occurrence: US)
  Receive Date: 20101214
  Receipt Date: 20141114
  Transmission Date: 20150529
  Serious: Yes (Other)
  Sender: FDA-Public Use
  Company Number: US-ROCHE-724881

PATIENT
  Age: 14 Year
  Sex: Male
  Weight: 135 kg

DRUGS (1)
  1. ACCUTANE [Suspect]
     Active Substance: ISOTRETINOIN
     Indication: ACNE
     Route: 065
     Dates: start: 20041119, end: 200504

REACTIONS (10)
  - Crohn^s disease [Unknown]
  - Anal fissure [Unknown]
  - Haemorrhoids [Unknown]
  - Colitis ulcerative [Unknown]
  - Depression [Unknown]
  - Irritable bowel syndrome [Unknown]
  - Suicidal ideation [Unknown]
  - Gastrointestinal injury [Unknown]
  - Xerosis [Unknown]
  - Inflammatory bowel disease [Unknown]

NARRATIVE: CASE EVENT DATE: 20050124
